FAERS Safety Report 9555626 (Version 1)
Quarter: 2013Q3

REPORT INFORMATION
  Report Type: Spontaneous
  Country: US (occurrence: None)
  Receive Date: 20130904
  Receipt Date: 20130904
  Transmission Date: 20140515
  Serious: Yes (Hospitalization)
  Sender: FDA-Public Use
  Company Number: A-US2013-80398

PATIENT
  Age: 49 Year
  Sex: Female

DRUGS (2)
  1. VELETRI [Suspect]
     Indication: PULMONARY ARTERIAL HYPERTENSION
     Dosage: PER MIN
     Route: 042
     Dates: start: 20120831
  2. ADCIRCA (TADALAFIL) [Concomitant]

REACTIONS (1)
  - Fluid retention [None]
